FAERS Safety Report 15907661 (Version 2)
Quarter: 2019Q1

REPORT INFORMATION
  Report Type: Spontaneous
  Country: FR (occurrence: FR)
  Receive Date: 20190204
  Receipt Date: 20190214
  Transmission Date: 20190417
  Serious: Yes (Hospitalization)
  Sender: FDA-Public Use
  Company Number: FR-JNJFOC-20190136179

PATIENT
  Age: 16 Year
  Sex: Male
  Weight: 63 kg

DRUGS (1)
  1. DARZALEX [Suspect]
     Active Substance: DARATUMUMAB
     Indication: LEUKAEMIA
     Route: 042
     Dates: start: 20190109, end: 20190109

REACTIONS (3)
  - Off label use [Unknown]
  - Infusion site reaction [Recovered/Resolved]
  - Product use in unapproved indication [Unknown]

NARRATIVE: CASE EVENT DATE: 20190109
